FAERS Safety Report 23293054 (Version 1)
Quarter: 2023Q4

REPORT INFORMATION
  Report Type: Spontaneous
  Country: GB (occurrence: GB)
  Receive Date: 20231213
  Receipt Date: 20231213
  Transmission Date: 20240110
  Serious: Yes (Other)
  Sender: FDA-Public Use
  Company Number: GB-VERTEX PHARMACEUTICALS-2023-018405

PATIENT

DRUGS (1)
  1. ELEXACAFTOR\IVACAFTOR\TEZACAFTOR [Suspect]
     Active Substance: ELEXACAFTOR\IVACAFTOR\TEZACAFTOR
     Indication: Cystic fibrosis
     Dosage: UNKNOWN FREQUENCY
     Route: 048
     Dates: start: 2020

REACTIONS (6)
  - Pulmonary fibrosis [Unknown]
  - Lung disorder [Unknown]
  - Glucose tolerance impaired [Unknown]
  - Glycosylated haemoglobin abnormal [Unknown]
  - Body mass index decreased [Unknown]
  - Treatment noncompliance [Unknown]
